FAERS Safety Report 9691101 (Version 2)
Quarter: 2013Q4

REPORT INFORMATION
  Report Type: Spontaneous
  Country: US (occurrence: US)
  Receive Date: 20131115
  Receipt Date: 20131204
  Transmission Date: 20140711
  Serious: Yes (Other)
  Sender: FDA-Public Use
  Company Number: US-BRISTOL-MYERS SQUIBB COMPANY-19760172

PATIENT
  Age: 78 Year
  Sex: Male
  Weight: 87.07 kg

DRUGS (1)
  1. ELIQUIS [Suspect]
     Indication: CEREBROVASCULAR ACCIDENT PROPHYLAXIS
     Dosage: INTERRUPTED ON 13OCT2013
     Dates: start: 201309

REACTIONS (1)
  - Rotator cuff syndrome [Unknown]
